FAERS Safety Report 9408424 (Version 1)
Quarter: 2013Q3

REPORT INFORMATION
  Report Type: Spontaneous
  Country: US (occurrence: US)
  Receive Date: 20130718
  Receipt Date: 20130718
  Transmission Date: 20140515
  Serious: Yes (Hospitalization, Other)
  Sender: FDA-Public Use
  Company Number: US-BAXTER-2013BAX027211

PATIENT
  Age: 80 Year
  Sex: Female

DRUGS (1)
  1. DIANEAL LOW CALCIUM [Suspect]
     Indication: PERITONEAL DIALYSIS
     Dosage: STARTED ABOUT 3 MOS AGO
     Route: 033

REACTIONS (6)
  - Clostridium difficile infection [Unknown]
  - Clostridium difficile colitis [Unknown]
  - Peritonitis [Recovered/Resolved]
  - Hypotension [Recovered/Resolved]
  - Peritonitis [Recovering/Resolving]
  - Fall [Recovering/Resolving]
